FAERS Safety Report 9186217 (Version 1)
Quarter: 2013Q1

REPORT INFORMATION
  Report Type: Spontaneous
  Country: US (occurrence: None)
  Receive Date: 20120628
  Receipt Date: 20120628
  Transmission Date: 20140127
  Serious: Yes (Other)
  Sender: FDA-Public Use
  Company Number: PHEH2011US04741

PATIENT
  Age: 74 Year
  Sex: Female

DRUGS (1)
  1. RECLAST [Suspect]
     Dates: start: 20100518

REACTIONS (1)
  - Blood calcium decreased [None]
